FAERS Safety Report 23109901 (Version 1)
Quarter: 2023Q4

REPORT INFORMATION
  Report Type: Report from Study
  Country: US (occurrence: US)
  Receive Date: 20231026
  Receipt Date: 20231026
  Transmission Date: 20240110
  Serious: Yes (Other)
  Sender: FDA-Public Use
  Company Number: US-Eisai-EC-2023-151217

PATIENT
  Age: 83 Year
  Sex: Female

DRUGS (2)
  1. LENVIMA [Suspect]
     Active Substance: LENVATINIB
     Indication: Renal cancer
     Route: 048
     Dates: start: 20230601, end: 2023
  2. INLYTA [Concomitant]
     Active Substance: AXITINIB
     Indication: Renal cancer
     Dates: start: 20230601

REACTIONS (2)
  - Diabetes mellitus [Unknown]
  - Rash macular [Unknown]

NARRATIVE: CASE EVENT DATE: 20230101
